FAERS Safety Report 4599213-8 (Version None)
Quarter: 2005Q1

REPORT INFORMATION
  Report Type: 
  Country: None (occurrence: None)
  Receive Date: 20050127
  Receipt Date: 20041027
  Transmission Date: 20050727
  Serious: No
  Sender: FDA-Public Use
  Company Number: USA041082370

PATIENT
  Age: 48 Year
  Sex: Female

DRUGS (6)
  1. STRATTERA [Suspect]
     Indication: ATTENTION DEFICIT/HYPERACTIVITY DISORDER
     Dosage: 80 MG DAY
     Dates: start: 20040101
  2. PROZAC [Concomitant]
  3. AMITRIPTYLINE HCL [Concomitant]
  4. LORAZEPAM [Concomitant]
  5. PROVIGIL [Concomitant]
  6. DEXTROAMPHETAMINE (DEXAMFETAMINE) [Concomitant]

REACTIONS (2)
  - ALOPECIA [None]
  - DRUG INEFFECTIVE [None]
